FAERS Safety Report 8153471 (Version 5)
Quarter: 2014Q1

REPORT INFORMATION
  Report Type: Report from Study
  Country: US (occurrence: US)
  Receive Date: 20110923
  Receipt Date: 20140107
  Transmission Date: 20141002
  Serious: Yes (Hospitalization)
  Sender: FDA-Public Use
  Company Number: US-JNJFOC-20110906234

PATIENT
  Age: 15 Year
  Sex: Female
  Weight: 37 kg

DRUGS (13)
  1. REMICADE [Suspect]
     Indication: CROHN^S DISEASE
     Route: 042
     Dates: start: 2008, end: 20090306
  2. REMICADE [Suspect]
     Indication: CROHN^S DISEASE
     Route: 042
     Dates: start: 2005, end: 2006
  3. ANTIBIOTICS [Concomitant]
     Indication: INFLAMMATORY BOWEL DISEASE
  4. PREDNISONE [Concomitant]
  5. METHOTREXATE [Concomitant]
  6. CALCIUM WITH VITAMIN D [Concomitant]
  7. CHOLECALCIFEROL [Concomitant]
  8. MULTIVIT [Concomitant]
  9. IRON [Concomitant]
  10. NYSTATIN [Concomitant]
  11. METRONIDAZOLE [Concomitant]
     Indication: ACROCHORDON
  12. TYSABRI [Concomitant]
     Dates: start: 20110425
  13. TYSABRI [Concomitant]
     Dates: start: 20110831

REACTIONS (1)
  - Crohn^s disease [Recovered/Resolved]
